FAERS Safety Report 12279407 (Version 4)
Quarter: 2016Q4

REPORT INFORMATION
  Report Type: Report from Study
  Country: DE (occurrence: DE)
  Receive Date: 20160418
  Receipt Date: 20161030
  Transmission Date: 20170207
  Serious: Yes (Hospitalization)
  Sender: FDA-Public Use
  Company Number: PHHY2016DE049506

PATIENT
  Age: 41 Year
  Sex: Female

DRUGS (1)
  1. GILENYA [Suspect]
     Active Substance: FINGOLIMOD HYDROCHLORIDE
     Indication: SECONDARY PROGRESSIVE MULTIPLE SCLEROSIS
     Dosage: 0.5 MG, QD
     Route: 048
     Dates: start: 20131016

REACTIONS (15)
  - Pollakiuria [Recovered/Resolved]
  - Uhthoff^s phenomenon [Unknown]
  - Urinary tract infection [Unknown]
  - Central nervous system lesion [Unknown]
  - Flank pain [Unknown]
  - Muscular weakness [Unknown]
  - Product use issue [Unknown]
  - Micturition disorder [Recovered/Resolved]
  - Pyrexia [Recovered/Resolved]
  - Dysuria [Recovered/Resolved]
  - Urine abnormality [Unknown]
  - Fatigue [Unknown]
  - Chills [Unknown]
  - Gait disturbance [Unknown]
  - Urinary retention [Unknown]

NARRATIVE: CASE EVENT DATE: 20160318
